FAERS Safety Report 4539219-8 (Version None)
Quarter: 2004Q4

REPORT INFORMATION
  Report Type: 
  Country: None (occurrence: None)
  Receive Date: 20041222
  Receipt Date: 20041209
  Transmission Date: 20050328
  Serious: Yes (Hospitalization)
  Sender: FDA-Public Use
  Company Number: 8008317

PATIENT
  Sex: Male

DRUGS (3)
  1. KEPPRA [Suspect]
     Indication: EPILEPSY
     Dosage: PO
     Route: 048
     Dates: start: 20040101, end: 20040101
  2. TEGRETOL [Suspect]
     Indication: EPILEPSY
     Dosage: PO
     Route: 048
     Dates: start: 20040101, end: 20040101
  3. RIVOTRIL [Suspect]
     Indication: EPILEPSY
     Dosage: PO
     Route: 048
     Dates: start: 20040101

REACTIONS (5)
  - ANAEMIA [None]
  - ANOXIA [None]
  - HAEMORRHAGE [None]
  - HYPOTENSION [None]
  - MYOCLONUS [None]
